FAERS Safety Report 17640773 (Version 1)
Quarter: 2020Q2

REPORT INFORMATION
  Report Type: Spontaneous
  Country: DE (occurrence: DE)
  Receive Date: 20200407
  Receipt Date: 20200407
  Transmission Date: 20200713
  Serious: Yes (Other)
  Sender: FDA-Public Use
  Company Number: DE-UCBSA-2020013983

PATIENT

DRUGS (1)
  1. ALPROSTADIL. [Suspect]
     Active Substance: ALPROSTADIL
     Indication: PRODUCT USED FOR UNKNOWN INDICATION
     Dosage: 0.3-0.6 NANOGRAM/KILOGRAM/MIN

REACTIONS (18)
  - Streptococcal infection [Unknown]
  - Syncope [Unknown]
  - Peripheral venous disease [Unknown]
  - Pulmonary embolism [Unknown]
  - Staphylococcal infection [Unknown]
  - Orthostatic hypotension [Unknown]
  - Erythema [Unknown]
  - Night sweats [Unknown]
  - Pain in extremity [Unknown]
  - Nausea [Unknown]
  - Sensory disturbance [Unknown]
  - Myocardial infarction [Unknown]
  - Blood pressure systolic increased [Unknown]
  - Device related infection [Unknown]
  - Localised oedema [Unknown]
  - Vomiting [Unknown]
  - Heart rate increased [Unknown]
  - Leukopenia [Unknown]
